FAERS Safety Report 16534416 (Version 3)
Quarter: 2019Q3

REPORT INFORMATION
  Report Type: Spontaneous
  Country: US (occurrence: US)
  Receive Date: 20190705
  Receipt Date: 20190718
  Transmission Date: 20191004
  Serious: Yes (Life-Threatening, Hospitalization, Other)
  Sender: FDA-Public Use
  Company Number: PHHY2019US154621

PATIENT
  Age: 35 Year
  Sex: Male

DRUGS (1)
  1. DICLOFENAC POTASSIUM. [Suspect]
     Active Substance: DICLOFENAC POTASSIUM
     Indication: BACK PAIN
     Dosage: 100 MG, BID
     Route: 065

REACTIONS (25)
  - Malaise [Recovered/Resolved]
  - C-reactive protein increased [Recovered/Resolved]
  - Transaminases increased [Unknown]
  - Thrombotic thrombocytopenic purpura [Recovered/Resolved]
  - Feeling hot [Recovered/Resolved]
  - Arthralgia [Recovered/Resolved]
  - Anaemia [Recovered/Resolved]
  - Diarrhoea [Recovered/Resolved]
  - Neurological decompensation [Unknown]
  - Pruritus [Recovered/Resolved]
  - Gastroenteritis viral [Recovered/Resolved]
  - Encephalopathy [Recovered/Resolved]
  - Blood lactate dehydrogenase increased [Recovered/Resolved]
  - Oropharyngeal pain [Recovered/Resolved]
  - Petechiae [Recovered/Resolved]
  - Microangiopathic haemolytic anaemia [Recovered/Resolved]
  - Haptoglobin increased [Recovered/Resolved]
  - Feeding intolerance [Recovered/Resolved]
  - Abdominal pain [Recovered/Resolved]
  - Fatigue [Recovered/Resolved]
  - Rash macular [Recovered/Resolved]
  - Pyrexia [Recovered/Resolved]
  - Thrombocytopenia [Recovered/Resolved]
  - Seizure [Recovered/Resolved]
  - Skin burning sensation [Recovered/Resolved]
